FAERS Safety Report 7008315-8 (Version None)
Quarter: 2010Q3

REPORT INFORMATION
  Report Type: 
  Country: None (occurrence: None)
  Receive Date: 20100922
  Receipt Date: 20100915
  Transmission Date: 20110219
  Serious: Yes (Other)
  Sender: FDA-Public Use
  Company Number: A0881294A

PATIENT
  Age: 4 Year
  Sex: Female

DRUGS (3)
  1. AUGMENTIN '125' [Suspect]
     Route: 048
     Dates: start: 20100907, end: 20100914
  2. CIPRO [Concomitant]
  3. KEPPRA [Concomitant]

REACTIONS (3)
  - INCORRECT STORAGE OF DRUG [None]
  - PYREXIA [None]
  - RASH [None]
